FAERS Safety Report 8614950-3 (Version None)
Quarter: 2012Q3

REPORT INFORMATION
  Report Type: 
  Country: None (occurrence: None)
  Receive Date: 20120814
  Receipt Date: 20120814
  Transmission Date: 20120928
  Serious: No
  Sender: FDA-Public Use
  Company Number: None

PATIENT
  Sex: Female
  Weight: 63.5036 kg

DRUGS (1)
  1. ATIVAN [Suspect]
     Indication: ANXIETY
     Dosage: 1/2 TAB 2X DAY YEARS TO NOW

REACTIONS (5)
  - NERVOUSNESS [None]
  - PRODUCT SUBSTITUTION ISSUE [None]
  - PRODUCT QUALITY ISSUE [None]
  - NERVOUS SYSTEM DISORDER [None]
  - DEHYDRATION [None]
